FAERS Safety Report 6655515-2 (Version None)
Quarter: 2010Q1

REPORT INFORMATION
  Report Type: 
  Country: None (occurrence: None)
  Receive Date: 20100329
  Receipt Date: 20100323
  Transmission Date: 20100710
  Serious: Yes (Life-Threatening)
  Sender: FDA-Public Use
  Company Number: FR-ASTRAZENECA-2010SE12655

PATIENT
  Age: 30006 Day
  Sex: Female

DRUGS (11)
  1. ZESTRIL [Suspect]
     Indication: HYPERTENSION
     Route: 048
     Dates: end: 20090921
  2. CLOZAPINE [Suspect]
     Indication: HALLUCINATION
     Route: 048
     Dates: start: 20081101, end: 20090919
  3. CLOZAPINE [Suspect]
     Route: 048
     Dates: start: 20090920, end: 20090921
  4. ARICEPT [Suspect]
     Indication: DEMENTIA WITH LEWY BODIES
     Route: 048
     Dates: start: 20080801, end: 20090915
  5. ARICEPT [Suspect]
     Route: 048
     Dates: start: 20090916, end: 20090921
  6. SEROPRAM [Suspect]
     Indication: AGITATION
     Route: 048
     Dates: start: 20090919, end: 20090921
  7. MODOPAR [Suspect]
     Indication: DEMENTIA WITH LEWY BODIES
     Dosage: 100+25 MG, 3 DF DAILY
     Route: 048
  8. LYSANXIA [Suspect]
     Indication: ANXIETY
     Route: 048
  9. NOCTAMIDE [Suspect]
     Indication: INSOMNIA
     Route: 048
  10. PARACETAMOL [Suspect]
     Indication: PAIN
     Route: 048
  11. EQUANIL [Suspect]
     Indication: ANXIETY
     Route: 048

REACTIONS (1)
  - CARDIO-RESPIRATORY ARREST [None]
